FAERS Safety Report 8234628-8 (Version None)
Quarter: 2012Q1

REPORT INFORMATION
  Report Type: 
  Country: None (occurrence: None)
  Receive Date: 20120322
  Receipt Date: 20120314
  Transmission Date: 20120608
  Serious: Yes (Hospitalization)
  Sender: FDA-Public Use
  Company Number: 2012SP012970

PATIENT
  Sex: Female

DRUGS (1)
  1. IMPLANON [Suspect]
     Indication: CONTRACEPTION
     Dosage: 1 DF

REACTIONS (3)
  - PREGNANCY WITH IMPLANT CONTRACEPTIVE [None]
  - COMPLICATION OF PREGNANCY [None]
  - MATERNAL EXPOSURE DURING PREGNANCY [None]
